FAERS Safety Report 9501531 (Version 1)
Quarter: 2013Q3

REPORT INFORMATION
  Report Type: Spontaneous
  Country: SE (occurrence: SE)
  Receive Date: 20130905
  Receipt Date: 20130905
  Transmission Date: 20140515
  Serious: Yes (Other)
  Sender: FDA-Public Use
  Company Number: SE-BRISTOL-MYERS SQUIBB COMPANY-19254440

PATIENT
  Age: 34 Year
  Sex: Female

DRUGS (2)
  1. STOCRIN TABS [Suspect]
     Dosage: FILM COATED TABS
     Route: 048
  2. KIVEXA [Suspect]
     Dosage: FILM COATED TABS,1DF: 600MG/300 MG
     Route: 048

REACTIONS (2)
  - Leukopenia [Not Recovered/Not Resolved]
  - Neutropenia [Not Recovered/Not Resolved]
